FAERS Safety Report 7925808-7 (Version None)
Quarter: 2011Q4

REPORT INFORMATION
  Report Type: 
  Country: None (occurrence: None)
  Receive Date: 20111118
  Receipt Date: 20110412
  Transmission Date: 20120403
  Serious: No
  Sender: FDA-Public Use
  Company Number: US-AMGEN-USASP2011019421

PATIENT
  Age: 29 Year
  Sex: Female
  Weight: 80.726 kg

DRUGS (5)
  1. ENBREL [Suspect]
     Indication: PRODUCT USED FOR UNKNOWN INDICATION
     Dosage: 50 MG, QWK
     Route: 058
  2. MULTIVITAMIN                       /00097801/ [Concomitant]
  3. NAPROXEN (ALEVE) [Concomitant]
     Dosage: 220 MG, UNK
  4. VITAMIN C                          /00008001/ [Concomitant]
     Dosage: 500 MG, UNK
  5. IBUPROFEN (ADVIL) [Concomitant]
     Dosage: 200 MG, UNK

REACTIONS (5)
  - JOINT SWELLING [None]
  - INJECTION SITE PAIN [None]
  - INJECTION SITE SWELLING [None]
  - INJECTION SITE REACTION [None]
  - INJECTION SITE ERYTHEMA [None]
